FAERS Safety Report 11146511 (Version 1)
Quarter: 2015Q2

REPORT INFORMATION
  Report Type: Report from Study
  Country: CA (occurrence: CA)
  Receive Date: 20150528
  Receipt Date: 20150528
  Transmission Date: 20150821
  Serious: Yes (Other)
  Sender: FDA-Public Use
  Company Number: CA-TOLMAR, INC.-2015CA004643

PATIENT

DRUGS (1)
  1. ELIGARD [Suspect]
     Active Substance: LEUPROLIDE ACETATE
     Indication: PROSTATE CANCER
     Dosage: 4 MONTHLY
     Route: 065
     Dates: start: 20051229, end: 20150125

REACTIONS (3)
  - Urinary bladder haemorrhage [Unknown]
  - Cardiac failure congestive [Unknown]
  - Terminal state [Unknown]

NARRATIVE: CASE EVENT DATE: 201504
